FAERS Safety Report 6455357-7 (Version None)
Quarter: 2009Q4

REPORT INFORMATION
  Report Type: 
  Country: None (occurrence: None)
  Receive Date: 20091125
  Receipt Date: 20091021
  Transmission Date: 20100525
  Serious: No
  Sender: FDA-Public Use
  Company Number: US-ABBOTT-09P-163-0604258-00

PATIENT
  Sex: Male
  Weight: 92.162 kg

DRUGS (2)
  1. SIMCOR [Suspect]
     Indication: BLOOD CHOLESTEROL INCREASED
     Dosage: 500 MG/20 MG AT NIGHT
     Dates: start: 20090301, end: 20091001
  2. SIMCOR [Suspect]
     Dosage: 1000 MG/20 MG AT NIGHT
     Dates: start: 20091001

REACTIONS (1)
  - PARAESTHESIA [None]
